FAERS Safety Report 7690902-5 (Version None)
Quarter: 2011Q3

REPORT INFORMATION
  Report Type: 
  Country: None (occurrence: None)
  Receive Date: 20110818
  Receipt Date: 20110818
  Transmission Date: 20111222
  Serious: Yes (Other)
  Sender: FDA-Public Use
  Company Number: None

PATIENT
  Age: 61 Year
  Sex: Male
  Weight: 72.574 kg

DRUGS (2)
  1. OXYCODONE HCL EXTENDED-RELEASE [Suspect]
     Indication: INTERVERTEBRAL DISC DEGENERATION
     Dosage: 2
     Route: 048
     Dates: start: 20110518, end: 20110813
  2. OXYCODONE HCL EXTENDED-RELEASE [Suspect]
     Indication: OSTEOARTHRITIS
     Dosage: 2
     Route: 048
     Dates: start: 20110518, end: 20110813

REACTIONS (6)
  - HEADACHE [None]
  - NAUSEA [None]
  - MUSCLE SPASMS [None]
  - FATIGUE [None]
  - ASTHENIA [None]
  - PRODUCT FORMULATION ISSUE [None]
